FAERS Safety Report 11021886 (Version 2)
Quarter: 2015Q2

REPORT INFORMATION
  Report Type: Report from Study
  Country: US (occurrence: US)
  Receive Date: 20150413
  Receipt Date: 20150416
  Transmission Date: 20150821
  Serious: Yes (Hospitalization, Other)
  Sender: FDA-Public Use
  Company Number: US-ABBVIE-15P-163-1373333-00

PATIENT
  Age: 57 Year
  Sex: Female

DRUGS (2)
  1. HUMIRA [Suspect]
     Active Substance: ADALIMUMAB
     Route: 065
     Dates: start: 20150318
  2. HUMIRA [Suspect]
     Active Substance: ADALIMUMAB
     Indication: CROHN^S DISEASE
     Route: 065
     Dates: start: 2010, end: 2010

REACTIONS (17)
  - Intestinal obstruction [Recovered/Resolved]
  - Muscle spasms [Not Recovered/Not Resolved]
  - Fluid retention [Unknown]
  - Urosepsis [Unknown]
  - Hip surgery [Unknown]
  - Cellulitis [Recovered/Resolved]
  - Crohn^s disease [Unknown]
  - Femur fracture [Unknown]
  - Headache [Recovered/Resolved]
  - Cold sweat [Recovered/Resolved]
  - Joint swelling [Not Recovered/Not Resolved]
  - Crohn^s disease [Recovered/Resolved]
  - Migraine [Unknown]
  - Oedema peripheral [Unknown]
  - Crohn^s disease [Recovered/Resolved]
  - Blood potassium abnormal [Unknown]
  - Knee arthroplasty [Unknown]

NARRATIVE: CASE EVENT DATE: 2010
